FAERS Safety Report 20748324 (Version 5)
Quarter: 2022Q3

REPORT INFORMATION
  Report Type: Spontaneous
  Country: BE (occurrence: BE)
  Receive Date: 20220426
  Receipt Date: 20220913
  Transmission Date: 20221026
  Serious: No
  Sender: FDA-Public Use
  Company Number: BE-SA-SAC20220422000847

PATIENT
  Sex: Male

DRUGS (5)
  1. CABLIVI [Suspect]
     Active Substance: CAPLACIZUMAB-YHDP
     Indication: Thrombotic thrombocytopenic purpura
     Dosage: 10 MG, QD
     Route: 042
     Dates: start: 20191104, end: 20191207
  2. CABLIVI [Suspect]
     Active Substance: CAPLACIZUMAB-YHDP
     Dosage: UNK
     Route: 065
     Dates: start: 20211111
  3. RITUXIMAB [Concomitant]
     Active Substance: RITUXIMAB
     Dosage: 375MG/M2 ON DAY 1,4,8 AND 14
     Dates: start: 20191105, end: 20191118
  4. RITUXIMAB [Concomitant]
     Active Substance: RITUXIMAB
     Dosage: 375 MG/M2 ON DAY 1,5,8 AND 13
     Route: 065
     Dates: start: 20211112, end: 20211124
  5. METHYLPREDNISOLONE [Concomitant]
     Active Substance: METHYLPREDNISOLONE
     Dosage: 1.5 MG/KG, QD
     Route: 065
     Dates: start: 20211110, end: 20211215

REACTIONS (2)
  - Jugular vein thrombosis [Unknown]
  - Haematuria [Recovered/Resolved]

NARRATIVE: CASE EVENT DATE: 20191114
